FAERS Safety Report 9528559 (Version 1)
Quarter: 2013Q1

REPORT INFORMATION
  Report Type: Spontaneous
  Country: US (occurrence: None)
  Receive Date: 20130314
  Receipt Date: 20130314
  Transmission Date: 20140127
  Serious: No
  Sender: FDA-Public Use
  Company Number: 1301USA009175

PATIENT
  Sex: Male
  Weight: 99.8 kg

DRUGS (1)
  1. VICTRELIS ( BOCEPREVIR) CAPSULE, 200 MG [Suspect]
     Indication: HEPATITIS C
     Route: 048

REACTIONS (4)
  - Headache [None]
  - Weight decreased [None]
  - Decreased appetite [None]
  - Irritability [None]
